FAERS Safety Report 7367796-0 (Version None)
Quarter: 2011Q1

REPORT INFORMATION
  Report Type: 
  Country: None (occurrence: None)
  Receive Date: 20110322
  Receipt Date: 20110316
  Transmission Date: 20110831
  Serious: Yes (Hospitalization)
  Sender: FDA-Public Use
  Company Number: US-ABBOTT-11P-163-0712746-00

PATIENT
  Sex: Male
  Weight: 106.69 kg

DRUGS (13)
  1. PROMETHAZINE [Concomitant]
     Indication: NAUSEA
     Route: 048
  2. HUMIRA [Suspect]
     Indication: CROHN'S DISEASE
     Route: 058
     Dates: start: 20060101, end: 20060101
  3. HUMULIN R [Concomitant]
     Indication: PARENTERAL NUTRITION
     Route: 058
     Dates: start: 20110101
  4. VITAMIN B-12 [Concomitant]
     Indication: CROHN'S DISEASE
     Route: 058
  5. FLEXERIL [Concomitant]
     Indication: PRODUCT USED FOR UNKNOWN INDICATION
     Route: 048
  6. METOPROLOL [Concomitant]
     Indication: BLOOD PRESSURE INCREASED
     Route: 048
  7. HUMIRA [Suspect]
     Route: 058
     Dates: start: 20090101, end: 20090101
  8. OXYCONTIN [Concomitant]
     Indication: PAIN
     Route: 048
  9. OXYCODONE HCL [Concomitant]
     Indication: BREAKTHROUGH PAIN
     Route: 048
  10. KLOR-CON [Concomitant]
     Indication: MINERAL SUPPLEMENTATION
     Route: 048
  11. HUMIRA [Suspect]
     Route: 058
     Dates: start: 20080101, end: 20090101
  12. HUMIRA [Suspect]
     Route: 058
     Dates: start: 20110101, end: 20110201
  13. ZOLOFT [Concomitant]
     Indication: DEPRESSION
     Route: 048

REACTIONS (6)
  - CROHN'S DISEASE [None]
  - FISTULA [None]
  - DRUG EFFECT DECREASED [None]
  - ARTHRALGIA [None]
  - OSTEOARTHRITIS [None]
  - INTESTINAL OBSTRUCTION [None]
